FAERS Safety Report 8395988-0 (Version None)
Quarter: 2012Q2

REPORT INFORMATION
  Report Type: 
  Country: None (occurrence: None)
  Receive Date: 20120530
  Receipt Date: 20120515
  Transmission Date: 20120825
  Serious: Yes (Other)
  Sender: FDA-Public Use
  Company Number: GB-WATSON-2012-09031

PATIENT
  Sex: Male

DRUGS (3)
  1. NEXAVAR [Suspect]
     Indication: PRODUCT USED FOR UNKNOWN INDICATION
     Dosage: UNK
     Route: 065
     Dates: start: 20120101
  2. CLARITHROMYCIN [Suspect]
     Indication: PRODUCT USED FOR UNKNOWN INDICATION
     Dosage: UNK
     Route: 065
     Dates: start: 20120101
  3. AMOXICILLIN [Suspect]
     Indication: PRODUCT USED FOR UNKNOWN INDICATION
     Dosage: UNK
     Route: 065
     Dates: start: 20120101

REACTIONS (6)
  - BRONCHOSPASM [None]
  - DRUG HYPERSENSITIVITY [None]
  - DYSPNOEA [None]
  - ANAPHYLACTIC REACTION [None]
  - ANGIOEDEMA [None]
  - HYPERHIDROSIS [None]
